FAERS Safety Report 24696077 (Version 1)
Quarter: 2024Q4

REPORT INFORMATION
  Report Type: Report from Study
  Country: US (occurrence: US)
  Receive Date: 20241204
  Receipt Date: 20241204
  Transmission Date: 20250115
  Serious: Yes (Other)
  Sender: AUROBINDO
  Company Number: US-AUROBINDO-AUR-APL-2024-058031

PATIENT

DRUGS (4)
  1. OLANZAPINE [Suspect]
     Active Substance: OLANZAPINE
     Indication: Prophylactic chemotherapy
     Dosage: 5 MILLIGRAM, AT BED TIME (ON DAY 1-5 FOR EACH CYCLE)
     Route: 065
     Dates: start: 20190327
  2. PROCHLORPERAZINE EDISYLATE [Suspect]
     Active Substance: PROCHLORPERAZINE EDISYLATE
     Indication: Prophylactic chemotherapy
     Dosage: 10 MILLIGRAM, AS NECESSARY (10MG EVERY 6 HOURS AS NEEDED)
     Route: 065
  3. PROCHLORPERAZINE EDISYLATE [Suspect]
     Active Substance: PROCHLORPERAZINE EDISYLATE
     Indication: Nausea
  4. NETUPITANT\PALONOSETRON [Suspect]
     Active Substance: NETUPITANT\PALONOSETRON
     Indication: Prophylactic chemotherapy
     Dosage: UNK UNK, DAILY
     Route: 065

REACTIONS (1)
  - Drug ineffective [Unknown]
